FAERS Safety Report 4675405-4 (Version None)
Quarter: 2005Q2

REPORT INFORMATION
  Report Type: 
  Country: None (occurrence: None)
  Receive Date: 20050527
  Receipt Date: 20050223
  Transmission Date: 20051028
  Serious: Yes (Other)
  Sender: FDA-Public Use
  Company Number: US-BRISTOL-MYERS SQUIBB COMPANY-12873329

PATIENT
  Age: 9 Year
  Sex: Male
  Weight: 27 kg

DRUGS (3)
  1. ABILIFY [Suspect]
     Indication: ATTENTION DEFICIT/HYPERACTIVITY DISORDER
     Dates: end: 20050223
  2. CONCERTA [Concomitant]
  3. CLONIDINE [Concomitant]

REACTIONS (2)
  - DYSKINESIA [None]
  - SINUSITIS [None]
